APPROVED DRUG PRODUCT: CLORAZEPATE DIPOTASSIUM
Active Ingredient: CLORAZEPATE DIPOTASSIUM
Strength: 7.5MG
Dosage Form/Route: TABLET;ORAL
Application: A071781 | Product #001
Applicant: ABLE LABORATORIES INC
Approved: Jun 26, 1987 | RLD: No | RS: No | Type: DISCN